FAERS Safety Report 10901182 (Version 1)
Quarter: 2015Q1

REPORT INFORMATION
  Report Type: Spontaneous
  Country: ZA (occurrence: ZA)
  Receive Date: 20150310
  Receipt Date: 20150310
  Transmission Date: 20150721
  Serious: Yes (Hospitalization)
  Sender: FDA-Public Use
  Company Number: ZA-MYLANLABS-2015M1007026

PATIENT

DRUGS (13)
  1. URBANOL [Concomitant]
     Active Substance: CLOBAZAM
     Indication: STRESS
     Dosage: UNK, BID
  2. NOVOMIX [Concomitant]
     Active Substance: INSULIN ASPART
     Indication: DIABETES MELLITUS
     Dosage: UNK, TID
  3. DISPRIN [Concomitant]
     Active Substance: ASPIRIN
     Indication: ANTICOAGULANT THERAPY
     Dosage: UNK, QD
  4. NORMISON                           /00393701/ [Concomitant]
     Active Substance: TEMAZEPAM
     Indication: INSOMNIA
     Dosage: UNK, QD
  5. SERDEP                             /00724402/ [Concomitant]
     Indication: DEPRESSION
     Dosage: UNK, QD
  6. EPITEC [Concomitant]
     Indication: EPILEPSY
     Dosage: UNK, QD
  7. GALVUS [Concomitant]
     Active Substance: VILDAGLIPTIN
     Indication: DIABETES MELLITUS
     Dosage: UNK, QD
  8. CELEBREX [Concomitant]
     Active Substance: CELECOXIB
     Indication: PAIN
     Dosage: UNK, QD
  9. LYRICA [Concomitant]
     Active Substance: PREGABALIN
     Indication: NEUROPATHY PERIPHERAL
     Dosage: UNK, QD
  10. TOPZOLE [Concomitant]
     Indication: GASTRIC ULCER
     Dosage: UNK, QD
  11. PURICOS [Concomitant]
     Active Substance: ALLOPURINOL
     Indication: GOUT
     Dosage: UNK, QD
  12. FUROSEMIDE. [Suspect]
     Active Substance: FUROSEMIDE
     Indication: DIURETIC THERAPY
     Dosage: UNK, QD
     Dates: start: 20141108, end: 201412
  13. ZARTAN [Concomitant]
     Indication: HYPERTENSION
     Dosage: UNK, QD

REACTIONS (2)
  - Cardiac failure [Recovered/Resolved]
  - Coma [Recovered/Resolved]
